FAERS Safety Report 9485033 (Version 2)
Quarter: 2013Q3

REPORT INFORMATION
  Report Type: Spontaneous
  Country: US (occurrence: US)
  Receive Date: 20130828
  Receipt Date: 20130828
  Transmission Date: 20140515
  Serious: No
  Sender: FDA-Public Use
  Company Number: US-ABBOTT-13P-163-1127556-00

PATIENT
  Age: 64 Year
  Sex: Male
  Weight: 106.69 kg

DRUGS (3)
  1. ANDROGEL [Suspect]
     Indication: BLOOD TESTOSTERONE DECREASED
     Dosage: TEN PUMPS PER DAY
     Dates: start: 2011, end: 2013
  2. ANDROGEL [Suspect]
     Dosage: 12 PUMPS PER DAY
     Dates: start: 2013
  3. TOPROL [Concomitant]
     Indication: HYPERTENSION

REACTIONS (3)
  - Incorrect dose administered [Unknown]
  - Sluggishness [Recovered/Resolved]
  - Drug ineffective [Recovered/Resolved]
